FAERS Safety Report 8663753 (Version 8)
Quarter: 2013Q2

REPORT INFORMATION
  Report Type: Report from Study
  Country: GB (occurrence: GB)
  Receive Date: 20120713
  Receipt Date: 20130617
  Transmission Date: 20140414
  Serious: Yes (Other)
  Sender: FDA-Public Use
  Company Number: GB-009507513-1205USA00026

PATIENT
  Age: 16 Year
  Sex: Female
  Weight: 53.6 kg

DRUGS (16)
  1. APREPITANT [Suspect]
     Indication: PROPHYLAXIS OF NAUSEA AND VOMITING
     Dosage: 125 MG, ONCE
     Route: 048
     Dates: start: 20120417, end: 20120417
  2. APREPITANT [Suspect]
     Dosage: 80 MG, QD
     Route: 048
     Dates: start: 20120418, end: 20120419
  3. ONDANSETRON HCL [Suspect]
     Indication: PROPHYLAXIS OF NAUSEA AND VOMITING
     Dosage: 5 ML, QAM
     Route: 048
     Dates: start: 20120418, end: 20120418
  4. ONDANSETRON HCL [Suspect]
     Dosage: 5 ML, QAM
     Route: 048
     Dates: start: 20120418, end: 20120418
  5. ONDANSETRON HCL [Suspect]
     Dosage: 5 ML, QPM
     Route: 048
     Dates: start: 20120418, end: 20120418
  6. ONDANSETRON HCL [Suspect]
     Dosage: 5 ML, QPM
     Route: 048
     Dates: start: 20120419, end: 20120419
  7. ONDANSETRON HCL [Suspect]
     Dosage: 5 ML, QAM
     Route: 048
     Dates: start: 20120419, end: 20120419
  8. ONDANSETRON HCL [Suspect]
     Dosage: 5 ML, QPM
     Route: 048
     Dates: start: 20120419, end: 20120419
  9. ONDANSETRON HCL [Suspect]
     Dosage: 5 ML, QPM
     Route: 048
     Dates: start: 20120420, end: 20120420
  10. ONDANSETRON HCL [Suspect]
     Dosage: 5 ML, QAM
     Route: 048
     Dates: start: 20120420, end: 20120420
  11. ONDANSETRON HCL [Suspect]
     Dosage: 5 ML, QPM
     Route: 048
     Dates: start: 20120420, end: 20120420
  12. DOXORUBICIN [Suspect]
     Indication: OSTEOSARCOMA
     Dosage: 59 MG, QD
     Route: 042
     Dates: start: 20120417, end: 20120419
  13. CISPLATIN [Suspect]
     Indication: OSTEOSARCOMA
     Dosage: 63 MG, QD
     Route: 042
     Dates: start: 20120417, end: 20120420
  14. DEXAMETHASONE SODIUM PHOSPHATE [Concomitant]
     Indication: PROPHYLAXIS OF NAUSEA AND VOMITING
     Dosage: 12 ML, QD
     Route: 041
     Dates: start: 20120417, end: 20120417
  15. DEXAMETHASONE SODIUM PHOSPHATE [Concomitant]
     Dosage: 8 ML, QPM
     Route: 042
     Dates: start: 20120418, end: 20120420
  16. ONDANSETRON [Concomitant]
     Indication: NAUSEA
     Dosage: 8 MG, BID
     Route: 042
     Dates: start: 20120414, end: 20120414

REACTIONS (1)
  - Electrocardiogram T wave inversion [Recovered/Resolved]
